FAERS Safety Report 22362873 (Version 1)
Quarter: 2023Q2

REPORT INFORMATION
  Report Type: Other
  Country: GR (occurrence: None)
  Receive Date: 20230525
  Receipt Date: 20230525
  Transmission Date: 20230722
  Serious: Yes (Hospitalization)
  Sender: FDA-Public Use
  Company Number: GR-AMGEN-GRCSP2023081856

PATIENT
  Age: 58 Year
  Sex: Male

DRUGS (2)
  1. BEVACIZUMAB [Suspect]
     Active Substance: BEVACIZUMAB
     Indication: Colon cancer metastatic
     Dosage: UNK
     Route: 065
     Dates: start: 202201
  2. FLUOROURACIL\IRINOTECAN\LEUCOVORIN\OXALIPLATIN [Concomitant]
     Active Substance: FLUOROURACIL\IRINOTECAN\LEUCOVORIN\OXALIPLATIN
     Indication: Colon cancer metastatic
     Dosage: UNK
     Route: 065
     Dates: start: 202201

REACTIONS (2)
  - Fournier^s gangrene [Recovered/Resolved]
  - Sepsis [Recovered/Resolved]
